FAERS Safety Report 23241818 (Version 1)
Quarter: 2023Q4

REPORT INFORMATION
  Report Type: Spontaneous
  Country: US (occurrence: None)
  Receive Date: 20231129
  Receipt Date: 20231129
  Transmission Date: 20240110
  Serious: Yes (Hospitalization)
  Sender: FDA-Public Use
  Company Number: None

PATIENT
  Age: 57 Year
  Sex: Male
  Weight: 87.3 kg

DRUGS (1)
  1. VANCOMYCIN [Suspect]
     Active Substance: VANCOMYCIN
     Dosage: OTHER FREQUENCY : ONCE;?
     Route: 041
     Dates: start: 20231120, end: 20231120

REACTIONS (5)
  - Feeling hot [None]
  - Infusion related reaction [None]
  - Blood pressure increased [None]
  - Body temperature decreased [None]
  - Documented hypersensitivity to administered product [None]

NARRATIVE: CASE EVENT DATE: 20231120
